FAERS Safety Report 18972154 (Version 2)
Quarter: 2021Q1

REPORT INFORMATION
  Report Type: Spontaneous
  Country: US (occurrence: US)
  Receive Date: 20210305
  Receipt Date: 20210308
  Transmission Date: 20210420
  Serious: No
  Sender: FDA-Public Use
  Company Number: US-BIOGEN-2021BI00985387

PATIENT
  Sex: Female

DRUGS (1)
  1. TECFIDERA [Suspect]
     Active Substance: DIMETHYL FUMARATE
     Indication: MULTIPLE SCLEROSIS
     Route: 065
     Dates: start: 20181031, end: 20190301

REACTIONS (9)
  - Flushing [Recovered/Resolved]
  - Abdominal pain upper [Recovered/Resolved]
  - White blood cell count decreased [Unknown]
  - Balance disorder [Unknown]
  - Hot flush [Unknown]
  - Headache [Unknown]
  - Dizziness [Unknown]
  - Ear infection [Unknown]
  - Abdominal pain [Unknown]
